FAERS Safety Report 13429999 (Version 3)
Quarter: 2017Q2

REPORT INFORMATION
  Report Type: Spontaneous
  Country: AT (occurrence: AT)
  Receive Date: 20170412
  Receipt Date: 20170428
  Transmission Date: 20170830
  Serious: Yes (Other)
  Sender: FDA-Public Use
  Company Number: AT-AMGEN-AUTSP2017055880

PATIENT
  Age: 72 Year
  Sex: Male
  Weight: 75 kg

DRUGS (4)
  1. KYPROLIS [Suspect]
     Active Substance: CARFILZOMIB
     Dosage: 39 MG, UNK
     Route: 042
     Dates: start: 20160301
  2. KYPROLIS [Suspect]
     Active Substance: CARFILZOMIB
     Indication: PLASMA CELL MYELOMA
     Dosage: 39 MG, UNK
     Route: 042
     Dates: start: 20160229
  3. DEXAMETHASONE. [Concomitant]
     Active Substance: DEXAMETHASONE
     Dosage: UNK
     Dates: start: 20160229
  4. KYPROLIS [Suspect]
     Active Substance: CARFILZOMIB
     Dosage: 20 MG/M2, 2 TIMES/WK
     Route: 042
     Dates: end: 20170308

REACTIONS (7)
  - Aortic valve incompetence [Unknown]
  - Mitral valve incompetence [Unknown]
  - Pericardial effusion [Unknown]
  - Diastolic dysfunction [Unknown]
  - Dyspnoea [Unknown]
  - Right ventricular enlargement [Unknown]
  - Left atrial enlargement [Unknown]

NARRATIVE: CASE EVENT DATE: 20170308
